FAERS Safety Report 10768888 (Version 3)
Quarter: 2015Q1

REPORT INFORMATION
  Report Type: Spontaneous
  Country: US (occurrence: US)
  Receive Date: 20150206
  Receipt Date: 20150326
  Transmission Date: 20150721
  Serious: Yes (Life-Threatening, Other)
  Sender: FDA-Public Use
  Company Number: US-009507513-1502USA000906

PATIENT
  Age: 49 Year
  Sex: Male
  Weight: 125.17 kg

DRUGS (14)
  1. GLIPIZIDE. [Concomitant]
     Active Substance: GLIPIZIDE
     Indication: DIABETES MELLITUS
     Dosage: TOTAL DAILY DOSE: 5 MG
     Route: 048
  2. SIMVASTATIN TABLETS, USP [Concomitant]
     Active Substance: SIMVASTATIN
     Indication: CARDIAC VALVE DISEASE
     Dosage: TOTAL DAILY DOSE: 100 MG
     Route: 048
  3. ZANAFLEX [Concomitant]
     Active Substance: TIZANIDINE HYDROCHLORIDE
     Indication: BACK PAIN
     Dosage: TOTAL DAILY DOSE: 8 MG
     Route: 048
  4. PRINIVIL [Concomitant]
     Active Substance: LISINOPRIL
     Indication: HYPERTENSION
     Dosage: TOTAL DAILY DOSE: 20 MG
     Route: 048
  5. ROBAXIN [Concomitant]
     Active Substance: METHOCARBAMOL
     Dosage: UNK, PRN
  6. JANUVIA [Suspect]
     Active Substance: SITAGLIPTIN PHOSPHATE
     Indication: TYPE 2 DIABETES MELLITUS
     Dosage: TOTAL DAILY DOSE: 100 MG
     Route: 048
     Dates: start: 20141014, end: 20150127
  7. CIALIS [Concomitant]
     Active Substance: TADALAFIL
     Indication: ERECTILE DYSFUNCTION
     Dosage: TOTAL DAILY DOSE: 5 MG
     Dates: start: 20141021
  8. ALBUTEROL SULFATE. [Concomitant]
     Active Substance: ALBUTEROL SULFATE
     Dosage: UNK, PRN
     Route: 048
  9. BETAMETHASONE [Concomitant]
     Active Substance: BETAMETHASONE
     Dosage: UNK, PRN
     Route: 061
  10. AMLODIPINE [Concomitant]
     Active Substance: AMLODIPINE BESYLATE
     Indication: HYPERTENSION
     Dosage: TOTAL DAILY DOSE: 5 MG
     Route: 048
  11. DICLOFENAC [Concomitant]
     Active Substance: DICLOFENAC
     Indication: BACK PAIN
     Dosage: UNK
     Route: 048
     Dates: start: 201501
  12. METFORMIN [Concomitant]
     Active Substance: METFORMIN HYDROCHLORIDE
     Indication: DIABETES MELLITUS
     Dosage: TOTAL DAILY DOSE: 2000 MG
     Route: 048
  13. DICLOMAX [Concomitant]
     Dosage: UNK
  14. VISTARIL [Concomitant]
     Active Substance: HYDROXYZINE PAMOATE
     Dosage: UNK, PRN

REACTIONS (2)
  - Pancreatitis acute [Recovered/Resolved]
  - pH urine decreased [Unknown]

NARRATIVE: CASE EVENT DATE: 20150116
